FAERS Safety Report 6459905-2 (Version None)
Quarter: 2009Q4

REPORT INFORMATION
  Report Type: 
  Country: None (occurrence: None)
  Receive Date: 20091129
  Receipt Date: 20091115
  Transmission Date: 20100525
  Serious: Yes (Hospitalization)
  Sender: FDA-Public Use
  Company Number: PHHY2009FI49263

PATIENT
  Sex: Female

DRUGS (15)
  1. EXELON [Suspect]
     Indication: DEMENTIA ALZHEIMER'S TYPE
     Dosage: 4.6MG/24H
     Route: 062
     Dates: start: 20090910
  2. ORMOX [Concomitant]
     Dosage: 20MG 1X2
  3. EMCONCOR [Concomitant]
     Dosage: 5MG 1X1
  4. ZANIDIP [Concomitant]
     Dosage: 10MG 1X1
  5. PRIMASPAN [Concomitant]
     Dosage: 100MG 1X1
  6. SYMBICORT [Concomitant]
     Dosage: 400MICROGRAM/12MICROGRAM / DOSE 2X2
  7. SINGULAIR [Concomitant]
     Dosage: 10MG 1X1
  8. PREDNISOLONE [Concomitant]
     Dosage: 5MG 1X1
  9. EBIXA [Concomitant]
     Dosage: 10MG 1X2
  10. OMEPRAZOLE [Concomitant]
     Dosage: 20MG 1X1
  11. LACTULOSE [Concomitant]
     Dosage: 20ML X 1
  12. KALEORID [Concomitant]
     Dosage: 1G 1X1
  13. OBSIDAN [Concomitant]
     Dosage: 1X1
  14. RETINOL [Concomitant]
     Dosage: UNK
  15. VAGIFEM [Concomitant]
     Dosage: UNK

REACTIONS (2)
  - CHRONIC OBSTRUCTIVE PULMONARY DISEASE [None]
  - DYSPNOEA [None]
